FAERS Safety Report 10257199 (Version 8)
Quarter: 2015Q2

REPORT INFORMATION
  Report Type: Report from Study
  Country: US (occurrence: None)
  Receive Date: 20140620
  Receipt Date: 20150407
  Transmission Date: 20150821
  Serious: Yes (Death, Hospitalization)
  Sender: FDA-Public Use
  Company Number: KAD201406-000652

PATIENT
  Age: 59 Year
  Sex: Male

DRUGS (33)
  1. CALCIUM CITRATE (CALCIUM CITRATE) [Concomitant]
  2. MULTIVITAMIN (ASCORBIC ACID, RIBOFLAVIN, THIAMINE HYDORCHLORIDE, RETINOL PALMITATE, TOCOPHERYL ACETATE, NICOTINAMIDE, PANTHENOL, PYRIDOXINE HYDROCHLORIDE, COLECALCIFEROL) [Concomitant]
  3. POTASSIUM (POTASSIUM) [Concomitant]
     Active Substance: POTASSIUM
  4. SENNA [Concomitant]
     Active Substance: SENNA LEAF\SENNOSIDES\SENNOSIDES A AND B
  5. LOVENOX [Concomitant]
     Active Substance: ENOXAPARIN SODIUM
  6. FENTANYL (FENTANYL) [Concomitant]
     Active Substance: FENTANYL
  7. SOLU-MEDROL (METHYLPRODNISOLONE) [Concomitant]
  8. VERSED (MIDAZOLAM HCL) [Concomitant]
  9. SPIRIVA (TIOTROPIUM BROMIDE) [Concomitant]
  10. METOPROLOL (METOPROLOL TARTRATE) [Concomitant]
     Active Substance: METOPROLOL TARTRATE
  11. PEGINTERFERON ALFA-2A [Suspect]
     Active Substance: PEGINTERFERON ALFA-2A
     Indication: CHRONIC HEPATITIS C
     Dosage: 1 DF DAILY, SUBCUTANEOUS
     Route: 058
     Dates: start: 20130820, end: 20140503
  12. MORPHINE (MORPHINE) [Concomitant]
     Active Substance: MORPHINE
  13. PRAMOXINE (PRAMOCAINE) [Concomitant]
  14. PEPCID [Concomitant]
     Active Substance: FAMOTIDINE
  15. AZACTAM (AZTREONAM) (AZTREONAM) [Concomitant]
  16. TELAPREVIR (TELAPREVIR) [Suspect]
     Active Substance: TELAPREVIR
     Indication: CHRONIC HEPATITIS C
     Route: 048
     Dates: start: 20130820, end: 20131111
  17. PROMETHAZINE [Concomitant]
     Active Substance: PROMETHAZINE\PROMETHAZINE HYDROCHLORIDE
  18. PAROXETINE (PAROXETINE HYDROCHLORIDE) (PARAXETINE HYDROCHLORIDE)?? [Concomitant]
  19. GUAIFENESIN (GUAIFENESIN) [Concomitant]
  20. ACETAMINOPHEN (ACETAMINOPHEN) [Concomitant]
     Active Substance: ACETAMINOPHEN
  21. LIDOCAINE (LIDOCAINE) [Concomitant]
     Active Substance: LIDOCAINE
  22. TEMAZEPAM (TEMAZEPAM) [Concomitant]
     Active Substance: TEMAZEPAM
  23. FORMOTEROL FUMARATE (FORMOTEROL FUMARATE) [Concomitant]
  24. PROPOFOL (PROPOFOL) [Concomitant]
     Active Substance: PROPOFOL
  25. VANCOMYCIN (VANCOMYCIN HCL) [Concomitant]
  26. CISATRACURIUM BESILATE (CISALTRACURIUM BESILATE) [Concomitant]
  27. DEXMEDETOMIDINE HCL (DEXMEDETOMIDINE HCL) [Concomitant]
  28. RIBAVIRIN. [Suspect]
     Active Substance: RIBAVIRIN
     Indication: CHRONIC HEPATITIS C
     Route: 048
     Dates: start: 20130820, end: 20140530
  29. ALBUTEROL (SALBUTAMOL) [Concomitant]
     Active Substance: ALBUTEROL
  30. VANCOMYCIN (VANCOMYCIN) [Concomitant]
     Active Substance: VANCOMYCIN
  31. BUDESONIDE (BUDESONIDE) [Concomitant]
     Active Substance: BUDESONIDE
  32. BMS 914143 (PEGINTERFERON LAMBDA) [Suspect]
     Active Substance: PEGINTERFERON LAMBDA-1A
     Indication: CHRONIC HEPATITIS C
     Route: 058
     Dates: start: 20130820, end: 20140603
  33. INSULIN (INSULIN) [Concomitant]
     Active Substance: INSULIN NOS

REACTIONS (17)
  - Pneumonia staphylococcal [None]
  - Loss of consciousness [None]
  - Pulmonary fibrosis [None]
  - Chronic obstructive pulmonary disease [None]
  - Pneumothorax traumatic [None]
  - Pneumothorax [None]
  - Hypoxia [None]
  - Interstitial lung disease [None]
  - Condition aggravated [None]
  - Pulmonary oedema [None]
  - Pneumonia [None]
  - Respiratory failure [None]
  - Haemoglobin decreased [None]
  - Haematocrit decreased [None]
  - Heart rate increased [None]
  - Lung infiltration [None]
  - Respiratory distress [None]

NARRATIVE: CASE EVENT DATE: 20140603
